FAERS Safety Report 9735260 (Version 2)
Quarter: 2013Q4

REPORT INFORMATION
  Report Type: Spontaneous
  Country: CA (occurrence: None)
  Receive Date: 20131204
  Receipt Date: 20131206
  Transmission Date: 20140711
  Serious: Yes (Hospitalization)
  Sender: FDA-Public Use
  Company Number: SYM-2013-13523

PATIENT
  Age: 62 Year
  Sex: Male

DRUGS (13)
  1. 5 FU [Suspect]
     Indication: COLORECTAL CANCER METASTATIC
     Route: 040
     Dates: start: 20130911, end: 20130911
  2. AFLIBERCEPT [Suspect]
     Indication: COLORECTAL CANCER METASTATIC
     Route: 041
     Dates: start: 20130911, end: 20130911
  3. IRINOTECAN [Suspect]
     Indication: COLORECTAL CANCER METASTATIC
     Route: 041
     Dates: start: 20130911, end: 20130911
  4. LEUCOVORIN [Suspect]
     Indication: COLORECTAL CANCER METASTATIC
     Route: 041
     Dates: start: 20130911, end: 20130911
  5. PANTOLOC(PANTOPRAZOLE SODIUM SESQUIHYDRATE)(PANTOPRAZOLE SODIUM SESQUIHYDRATE) [Concomitant]
  6. STEMETIL(PROCHLORPERAZINE)(PROCHLORPERAZINE) [Concomitant]
  7. DIABETA(GLIBENCLAMIDE)(GLIBENCLAMIDE) [Concomitant]
  8. JANUMET(RISTFOR)(METFORMIN HYDROCHLORIDE, SITAGLIPTIN PHOSPHATE MONOHYDRATE) [Concomitant]
  9. CRESTOR(ROSUVASTATIN CALCIUM)(ROSUVASTATIN CALCIUM) [Concomitant]
  10. TELMISARTAN(TELMISARTAN)(TELMISARTAN) [Concomitant]
  11. HYDROCHLOROTHIAZIDE(HYDROCHLOROTHIAZIDE)(HYDROCHLOROTHIAZIDE) [Concomitant]
  12. ASPIRIN(ACETYLSALICYLIC ACID)(ACETYLSALICYLIC ACID) [Concomitant]
  13. K-DUR(POTASSIUM CHLORIDE)(POTASSIUM CHLORIDE) [Concomitant]

REACTIONS (1)
  - Febrile neutropenia [None]
